FAERS Safety Report 10504805 (Version 1)
Quarter: 2014Q3

REPORT INFORMATION
  Report Type: Spontaneous
  Country: US (occurrence: None)
  Receive Date: 20140926
  Receipt Date: 20140926
  Transmission Date: 20150326
  Serious: No
  Sender: FDA-Public Use
  Company Number: 1000069167

PATIENT
  Age: 65 Year
  Sex: Female

DRUGS (5)
  1. PREVACID [Concomitant]
     Active Substance: LANSOPRAZOLE
  2. ATIVAN (LORAZEPAM) (LORAZEPAM) [Concomitant]
  3. LINZESS [Suspect]
     Active Substance: LINACLOTIDE
     Indication: CONSTIPATION
     Route: 048
     Dates: start: 20140709
  4. ZIAC (BISOPROLOL FUMARATE, HYDROCHLOROTHIAZIDE) (BISOPROLOL FUMARATE, HYDROCHLOROTHIAZIDE [Concomitant]
  5. VERAPAMIL (VERAPAMIL) (VERAPAMIL) [Concomitant]
     Active Substance: VERAPAMIL HYDROCHLORIDE

REACTIONS (1)
  - Diarrhoea [None]

NARRATIVE: CASE EVENT DATE: 20140716
